FAERS Safety Report 8976385 (Version 2)
Quarter: 2019Q2

REPORT INFORMATION
  Report Type: Spontaneous
  Country: US (occurrence: US)
  Receive Date: 20121220
  Receipt Date: 20190618
  Transmission Date: 20190711
  Serious: Yes (Other)
  Sender: FDA-Public Use
  Company Number: US-PFIZER INC-2012318365

PATIENT
  Age: 53 Year
  Sex: Female

DRUGS (9)
  1. MAGNESIUM [Concomitant]
     Active Substance: MAGNESIUM
     Dosage: 250 MG, 1X/DAY
     Route: 048
  2. SUMATRIPTAN SUCCINATE. [Suspect]
     Active Substance: SUMATRIPTAN SUCCINATE
     Dosage: 50-100MG
     Route: 048
  3. SUMATRIPTAN SUCCINATE. [Suspect]
     Active Substance: SUMATRIPTAN SUCCINATE
     Dosage: 50 MG, UNK
     Route: 048
     Dates: start: 20071115
  4. SUMATRIPTAN SUCCINATE. [Suspect]
     Active Substance: SUMATRIPTAN SUCCINATE
     Indication: HEADACHE
     Dosage: 6 MG, UNK
     Route: 058
  5. RIBOFLAVIN [Concomitant]
     Active Substance: RIBOFLAVIN
     Indication: PROPHYLAXIS
     Dosage: 100 MG, 1X/DAY
  6. NADOLOL. [Suspect]
     Active Substance: NADOLOL
     Dosage: 20 MG, DAILY
  7. NAPROXEN SODIUM. [Concomitant]
     Active Substance: NAPROXEN SODIUM
     Dosage: UNK
  8. RIBOFLAVIN [Concomitant]
     Active Substance: RIBOFLAVIN
     Dosage: 400 MG, 1X/DAY
  9. SUMATRIPTAN SUCCINATE. [Suspect]
     Active Substance: SUMATRIPTAN SUCCINATE
     Indication: HEADACHE
     Dosage: 100 MG, UNK
     Route: 048

REACTIONS (10)
  - Prinzmetal angina [Unknown]
  - Bradycardia [Unknown]
  - Electrocardiogram T wave abnormal [Recovered/Resolved]
  - Hyperhidrosis [Unknown]
  - Ventricular tachycardia [Recovered/Resolved]
  - Raynaud^s phenomenon [Unknown]
  - Chronotropic incompetence [Unknown]
  - Electrocardiogram ST segment abnormal [Recovered/Resolved]
  - Hypoaesthesia [Unknown]
  - Chest pain [Recovered/Resolved]

NARRATIVE: CASE EVENT DATE: 2005
